FAERS Safety Report 12775954 (Version 2)
Quarter: 2016Q4

REPORT INFORMATION
  Report Type: Spontaneous
  Country: US (occurrence: US)
  Receive Date: 20160923
  Receipt Date: 20161021
  Transmission Date: 20170207
  Serious: Yes (Hospitalization, Other)
  Sender: FDA-Public Use
  Company Number: US-SAOL THERAPEUTICS-2016SAO00683

PATIENT
  Age: 45 Year
  Sex: Male

DRUGS (4)
  1. LIORESAL [Suspect]
     Active Substance: BACLOFEN
     Dosage: 550 ?G, \DAY
     Route: 037
     Dates: start: 20160907, end: 20160908
  2. LIORESAL [Suspect]
     Active Substance: BACLOFEN
     Dosage: 475 ?G \DAY
     Dates: start: 20160908, end: 20160909
  3. LIORESAL [Suspect]
     Active Substance: BACLOFEN
     Dosage: 525 ?G \DAY
     Dates: start: 20160909
  4. LIORESAL [Suspect]
     Active Substance: BACLOFEN
     Indication: MUSCLE SPASTICITY
     Dosage: 610 ?G \DAY
     Dates: end: 20160907

REACTIONS (4)
  - Hypercapnia [Unknown]
  - Respiratory disorder [Not Recovered/Not Resolved]
  - Clonus [Unknown]
  - Aspiration [Not Recovered/Not Resolved]

NARRATIVE: CASE EVENT DATE: 201609
